FAERS Safety Report 11685652 (Version 1)
Quarter: 2015Q4

REPORT INFORMATION
  Report Type: Spontaneous
  Country: CA (occurrence: CA)
  Receive Date: 20151030
  Receipt Date: 20151030
  Transmission Date: 20160304
  Serious: Yes (Hospitalization, Other)
  Sender: FDA-Public Use
  Company Number: CA-WATSON-2015-19392

PATIENT
  Age: 38 Year
  Sex: Female

DRUGS (7)
  1. CLOZAPINE (UNKNOWN) [Suspect]
     Active Substance: CLOZAPINE
     Indication: PSYCHOTIC DISORDER
     Dosage: UNK
     Route: 065
  2. PROPRANOLOL [Concomitant]
     Active Substance: PROPRANOLOL\PROPRANOLOL HYDROCHLORIDE
     Indication: PRODUCT USED FOR UNKNOWN INDICATION
     Dosage: 20 MG, BID
     Route: 065
  3. DIMENHYDRINATE (UNKNOWN) [Suspect]
     Active Substance: DIMENHYDRINATE
     Indication: EPIGASTRIC DISCOMFORT
  4. DIMENHYDRINATE (UNKNOWN) [Suspect]
     Active Substance: DIMENHYDRINATE
     Indication: NAUSEA
     Dosage: INITIALLY 10 50-MG TABLETS3 TO 4 DAYS/WEEKS; IN THE LAST YEAR 20 OR 30 TABLETS DAILY
     Route: 065
  5. ZUCLOPENTHIXOL [Concomitant]
     Active Substance: ZUCLOPENTHIXOL
     Indication: PSYCHOTIC DISORDER
     Dosage: 250 MG, 1/TWO WEEKS
     Route: 030
  6. CITALOPRAM [Concomitant]
     Active Substance: CITALOPRAM HYDROBROMIDE
     Indication: PRODUCT USED FOR UNKNOWN INDICATION
     Dosage: 40 MG, DAILY
     Route: 065
  7. HALOPERIDOL. [Concomitant]
     Active Substance: HALOPERIDOL
     Indication: PSYCHOTIC DISORDER
     Dosage: 1 MG, DAILY
     Route: 065

REACTIONS (9)
  - Hypotension [Unknown]
  - Intentional overdose [Unknown]
  - Psychotic disorder [Recovering/Resolving]
  - Sedation [Unknown]
  - Abnormal behaviour [Unknown]
  - Drug abuse [Unknown]
  - Drug dependence [Unknown]
  - Tachycardia [Not Recovered/Not Resolved]
  - Euphoric mood [Unknown]
